FAERS Safety Report 6540269-0 (Version None)
Quarter: 2010Q1

REPORT INFORMATION
  Report Type: 
  Country: None (occurrence: None)
  Receive Date: 20100115
  Receipt Date: 20100106
  Transmission Date: 20100710
  Serious: Yes (Other)
  Sender: FDA-Public Use
  Company Number: MX-ABBOTT-10P-107-0617980-00

PATIENT
  Sex: Female
  Weight: 43.5 kg

DRUGS (2)
  1. HUMIRA [Suspect]
     Indication: RHEUMATOID ARTHRITIS
     Dates: start: 20070109
  2. ARAVA [Concomitant]
     Indication: RHEUMATOID ARTHRITIS
     Route: 048
     Dates: start: 20060101

REACTIONS (3)
  - ALOPECIA [None]
  - NASAL SEPTUM DEVIATION [None]
  - RESPIRATORY DISORDER [None]
